FAERS Safety Report 6717356-7 (Version None)
Quarter: 2010Q2

REPORT INFORMATION
  Report Type: 
  Country: None (occurrence: None)
  Receive Date: 20100505
  Receipt Date: 20100422
  Transmission Date: 20101027
  Serious: Yes (Other)
  Sender: FDA-Public Use
  Company Number: 7002478

PATIENT
  Age: 48 Year
  Sex: Female
  Weight: 59 kg

DRUGS (5)
  1. REBIF [Suspect]
     Indication: MULTIPLE SCLEROSIS
     Dosage: 44 MCG :22MCG,3 IN 1 WK   SC
     Route: 058
     Dates: start: 20100120, end: 20100101
  2. REBIF [Suspect]
     Indication: MULTIPLE SCLEROSIS
     Dosage: 44 MCG :22MCG,3 IN 1 WK   SC
     Route: 058
     Dates: end: 20100101
  3. AMBIEN [Concomitant]
  4. NAPRELAN [Concomitant]
  5. TYLENOL (PARACETAMOL) [Concomitant]

REACTIONS (9)
  - CHOLECYSTITIS [None]
  - CHOLELITHIASIS [None]
  - FATIGUE [None]
  - GASTRIC ULCER [None]
  - INFLUENZA LIKE ILLNESS [None]
  - PAIN [None]
  - PLATELET COUNT DECREASED [None]
  - SMALL INTESTINE ULCER [None]
  - WHITE BLOOD CELL COUNT DECREASED [None]
